FAERS Safety Report 6983348-6 (Version None)
Quarter: 2010Q3

REPORT INFORMATION
  Report Type: 
  Country: None (occurrence: None)
  Receive Date: 20100910
  Receipt Date: 20100903
  Transmission Date: 20110219
  Serious: Yes (Hospitalization)
  Sender: FDA-Public Use
  Company Number: 100175

PATIENT
  Age: 77 Year
  Sex: Female
  Weight: 51.2565 kg

DRUGS (4)
  1. HALFLYTELY [Suspect]
     Indication: COLONOSCOPY
     Dosage: 10MG/~56PZ, 1X., PO
     Route: 048
     Dates: start: 20100505
  2. BACTRIM (PROPHYLACTIC) [Concomitant]
  3. BLOOD PRESSURE MEDICATION [Concomitant]
  4. CALCIUM WITH VITAMIN D [Concomitant]

REACTIONS (7)
  - ABDOMINAL PAIN [None]
  - EMPYEMA [None]
  - FUNGAL INFECTION [None]
  - MALLORY-WEISS SYNDROME [None]
  - OESOPHAGEAL RUPTURE [None]
  - RETCHING [None]
  - VOMITING PROJECTILE [None]
